FAERS Safety Report 8831526 (Version 6)
Quarter: 2014Q3

REPORT INFORMATION
  Report Type: Spontaneous
  Country: JP (occurrence: JP)
  Receive Date: 20121008
  Receipt Date: 20140908
  Transmission Date: 20150326
  Serious: Yes (Life-Threatening)
  Sender: FDA-Public Use
  Company Number: JP-GLAXOSMITHKLINE-B0835720A

PATIENT
  Age: 44 Year
  Sex: Female
  Weight: 51 kg

DRUGS (9)
  1. ASPARA POTASSIUM [Concomitant]
     Active Substance: POTASSIUM ASPARTATE
     Dosage: 300MG TWICE PER DAY
     Route: 048
  2. PREDNISOLONE. [Concomitant]
     Active Substance: PREDNISOLONE
     Indication: ANTI-NEUTROPHIL CYTOPLASMIC ANTIBODY POSITIVE VASCULITIS
     Dosage: 4MG PER DAY
     Route: 048
  3. SENNA [Concomitant]
     Active Substance: SENNA LEAF\SENNOSIDES\SENNOSIDES A AND B
     Dosage: 40MG THREE TIMES PER DAY
     Route: 048
  4. ADALAT CC [Concomitant]
     Active Substance: NIFEDIPINE
     Dosage: 20MG THREE TIMES PER DAY
     Route: 048
  5. ATENENTOIN [Concomitant]
     Dosage: 1IUAX THREE TIMES PER DAY
     Route: 048
     Dates: start: 20120929, end: 20121002
  6. METHYCOBAL [Concomitant]
     Active Substance: METHYLCOBALAMIN
     Dosage: 1IUAX THREE TIMES PER DAY
     Route: 048
     Dates: start: 20120929, end: 20121002
  7. VALTREX [Suspect]
     Active Substance: VALACYCLOVIR HYDROCHLORIDE
     Indication: HERPES ZOSTER
     Dosage: 1000MG THREE TIMES PER DAY
     Route: 048
     Dates: start: 20120930, end: 20121002
  8. OLMETEC [Concomitant]
     Active Substance: OLMESARTAN MEDOXOMIL
     Dosage: 20MG TWICE PER DAY
     Route: 048
  9. ROSEOL [Concomitant]
     Active Substance: LOXOPROFEN SODIUM
     Dosage: 1IUAX THREE TIMES PER DAY
     Route: 048
     Dates: start: 20120929, end: 20121002

REACTIONS (11)
  - Hypoaesthesia [Recovering/Resolving]
  - Renal disorder [Unknown]
  - Loss of consciousness [Recovered/Resolved]
  - Anaemia [Unknown]
  - Overdose [Unknown]
  - Electrolyte imbalance [Unknown]
  - Dizziness [Unknown]
  - Convulsion [Recovered/Resolved]
  - Encephalopathy [Recovered/Resolved]
  - Muscular weakness [Recovering/Resolving]
  - Altered state of consciousness [Recovered/Resolved]

NARRATIVE: CASE EVENT DATE: 2012
